FAERS Safety Report 5878565-2 (Version None)
Quarter: 2008Q3

REPORT INFORMATION
  Report Type: 
  Country: None (occurrence: None)
  Receive Date: 20080910
  Receipt Date: 20080821
  Transmission Date: 20090109
  Serious: Yes (Death, Hospitalization)
  Sender: FDA-Public Use
  Company Number: M-04-041

PATIENT
  Age: 69 Year
  Sex: Male

DRUGS (19)
  1. AMIODARONE HCL [Suspect]
     Indication: ATRIAL FIBRILLATION
     Dosage: 200 MG QD PO
     Route: 048
     Dates: start: 20030224, end: 20040104
  2. AMIODARONE HCL [Suspect]
     Indication: ATRIAL FIBRILLATION
     Dosage: 200 MG BID PO
     Route: 048
     Dates: start: 19991201, end: 20000718
  3. SYNTHROID [Concomitant]
  4. DIGOXIN [Concomitant]
  5. COUMADIN [Concomitant]
  6. ALLOPURINOL [Concomitant]
  7. CELEXA [Concomitant]
  8. TRAZODONE HCL [Concomitant]
  9. LORAZEPAM [Concomitant]
  10. PRILOSEC [Concomitant]
  11. PREDNISONE TAB [Concomitant]
  12. ZOCOR [Concomitant]
  13. CELEBREX [Concomitant]
  14. K-DUR [Concomitant]
  15. LASIX [Concomitant]
  16. NEURONTIN [Concomitant]
  17. ALPHAGAN [Concomitant]
  18. CLONIDINE [Concomitant]
  19. HYDROCHLOROTHIAZIDE [Concomitant]

REACTIONS (13)
  - ACUTE RESPIRATORY DISTRESS SYNDROME [None]
  - CONNECTIVE TISSUE DISORDER [None]
  - DIFFUSE ALVEOLAR DAMAGE [None]
  - ELECTROCARDIOGRAM POOR R-WAVE PROGRESSION [None]
  - ELECTROCARDIOGRAM ST-T CHANGE [None]
  - GENERAL PHYSICAL HEALTH DETERIORATION [None]
  - HYPOTENSION [None]
  - LUNG INFECTION [None]
  - PULMONARY FIBROSIS [None]
  - PULMONARY TOXICITY [None]
  - RESPIRATORY FAILURE [None]
  - THROAT IRRITATION [None]
  - TREMOR [None]
